FAERS Safety Report 5385822-5 (Version None)
Quarter: 2007Q3

REPORT INFORMATION
  Report Type: 
  Country: None (occurrence: None)
  Receive Date: 20070712
  Receipt Date: 20070703
  Transmission Date: 20080115
  Serious: Yes (Hospitalization)
  Sender: FDA-Public Use
  Company Number: JP-ELI_LILLY_AND_COMPANY-JP200706004993

PATIENT
  Age: 97 Year
  Sex: Female
  Weight: 43 kg

DRUGS (7)
  1. RALOXIFENE HYDROCHLORIDE [Suspect]
     Indication: OSTEOPOROSIS POSTMENOPAUSAL
     Dosage: 60 MG, DAILY (1/D)
     Route: 048
     Dates: start: 20050127, end: 20061106
  2. GLAKAY [Concomitant]
     Indication: OSTEOPOROSIS POSTMENOPAUSAL
     Dosage: 45 MG, DAILY (1/D)
     Route: 048
     Dates: start: 20050127, end: 20061106
  3. NORVASC [Concomitant]
     Indication: HYPERTENSION
     Dosage: 5 MG, DAILY (1/D)
     Route: 048
     Dates: start: 19901004, end: 20061106
  4. COMELIAN [Concomitant]
     Indication: ANGINA PECTORIS
     Dosage: 150 MG, DAILY (1/D)
     Route: 048
     Dates: start: 19901004, end: 20061106
  5. PREDONINE [Concomitant]
     Indication: RHEUMATOID ARTHRITIS
     Dosage: 10 MG, DAILY (1/D)
     Route: 048
     Dates: start: 20050124, end: 20060115
  6. PREDONINE [Concomitant]
     Dosage: 10 MG, DAILY (1/D)
     Route: 048
     Dates: start: 20060106, end: 20061106
  7. WARKMIN [Concomitant]
     Indication: OSTEOPOROSIS POSTMENOPAUSAL
     Dosage: 0.5 UG, DAILY (1/D)
     Route: 048
     Dates: end: 20061106

REACTIONS (1)
  - INTERSTITIAL LUNG DISEASE [None]
